FAERS Safety Report 5930145-6 (Version None)
Quarter: 2008Q4

REPORT INFORMATION
  Report Type: 
  Country: None (occurrence: None)
  Receive Date: 20081024
  Receipt Date: 20081014
  Transmission Date: 20090506
  Serious: Yes (Hospitalization, Other)
  Sender: FDA-Public Use
  Company Number: US-PFIZER INC-2008086591

PATIENT
  Sex: Female

DRUGS (21)
  1. ZITHROMAX [Suspect]
  2. REVLIMID [Suspect]
     Indication: MULTIPLE MYELOMA
     Dosage: DAILY DOSE:25MG-FREQ:QD X 21
     Route: 048
     Dates: start: 20080610
  3. REVLIMID [Suspect]
     Dosage: DAILY DOSE:25MG
     Route: 048
     Dates: start: 20080826
  4. EFFEXOR [Suspect]
  5. MEGACE [Concomitant]
     Indication: APPETITE DISORDER
     Dosage: DAILY DOSE:40MG
     Dates: start: 20080801
  6. LEXAPRO [Concomitant]
     Indication: DEPRESSION
     Dosage: DAILY DOSE:10MG-FREQ:HS
  7. MAGNESIUM OXIDE [Concomitant]
     Indication: HYPOMAGNESAEMIA
     Dosage: DAILY DOSE:400MG
  8. EPOGEN [Concomitant]
     Indication: ANAEMIA
     Dosage: DAILY DOSE:60000I.U.
     Dates: start: 20080701
  9. ACETYLSALICYLIC ACID SRT [Concomitant]
     Dosage: DAILY DOSE:325MG
     Dates: start: 20080610
  10. PREDNISONE TAB [Concomitant]
     Indication: MULTIPLE MYELOMA
     Dosage: DAILY DOSE:40MG
     Dates: start: 20080820
  11. ZOMETA [Concomitant]
     Indication: MULTIPLE MYELOMA
     Dosage: DAILY DOSE:4MG
     Route: 042
     Dates: start: 20080716
  12. HYDROCHLOROTHIAZIDE [Concomitant]
     Indication: OEDEMA
     Dosage: DAILY DOSE:25MG-FREQ:AS NEEDED
     Route: 048
  13. K-DUR [Concomitant]
     Indication: HYPOKALAEMIA
     Dosage: DAILY DOSE:40MEQ
  14. PREVACID [Concomitant]
     Indication: DYSPEPSIA
     Dosage: DAILY DOSE:30MG
  15. ALDACTONE [Concomitant]
     Indication: HYPERTENSION
     Dosage: DAILY DOSE:12.5MG-FREQ:DAILY EVERY MORNING
     Route: 048
  16. DECADRON [Concomitant]
     Dosage: DAILY DOSE:40MG-FREQ:ON WEDNESDAY
  17. HYDRODIURIL [Concomitant]
     Indication: OEDEMA
     Dosage: DAILY DOSE:25MG-FREQ:IN THE MORNING AS NEEDED
  18. PRILOSEC [Concomitant]
  19. NYSTATIN [Concomitant]
     Route: 048
  20. MIRALAX [Concomitant]
  21. BLOOD AND RELATED PRODUCTS [Concomitant]
     Indication: HAEMOGLOBIN DECREASED
     Route: 042

REACTIONS (13)
  - ANOREXIA [None]
  - CANDIDIASIS [None]
  - CONSTIPATION [None]
  - DEHYDRATION [None]
  - DIARRHOEA [None]
  - LIVER FUNCTION TEST ABNORMAL [None]
  - NAUSEA [None]
  - OEDEMA [None]
  - PANCYTOPENIA [None]
  - PNEUMONIA [None]
  - TACHYCARDIA [None]
  - VOMITING [None]
  - WEIGHT DECREASED [None]
